FAERS Safety Report 7436607-7 (Version None)
Quarter: 2011Q2

REPORT INFORMATION
  Report Type: 
  Country: None (occurrence: None)
  Receive Date: 20110418
  Receipt Date: 20110404
  Transmission Date: 20111010
  Serious: Yes (Other)
  Sender: FDA-Public Use
  Company Number: GGEL20110400538

PATIENT
  Age: 65 Year
  Sex: Female
  Weight: 52.3 kg

DRUGS (4)
  1. MOXONIDINE (MOXONIDINE) (MOXONIDINE) [Concomitant]
  2. ROSUVASTATIN [Concomitant]
  3. BENDROFLUAZIDE (BENDROFLUAZIDE) (BENDROFLUAZIDE) [Concomitant]
  4. ROPINIROLE [Suspect]
     Indication: RESTLESS LEGS SYNDROME
     Dosage: ORAL USE
     Route: 048
     Dates: start: 20101115, end: 20110303

REACTIONS (1)
  - WITHDRAWAL SYNDROME [None]
